FAERS Safety Report 8542087-0 (Version None)
Quarter: 2012Q3

REPORT INFORMATION
  Report Type: 
  Country: None (occurrence: None)
  Receive Date: 20120726
  Receipt Date: 20111018
  Transmission Date: 20120928
  Serious: No
  Sender: FDA-Public Use
  Company Number: US-ASTRAZENECA-2011SE62822

PATIENT
  Age: 57 Year
  Sex: Female

DRUGS (6)
  1. SEROQUEL [Suspect]
     Route: 048
     Dates: start: 20110601, end: 20110915
  2. LITHIUM CARBONATE [Concomitant]
  3. SEROQUEL [Suspect]
     Route: 048
     Dates: start: 20091001, end: 20110601
  4. GABAPENTIN [Concomitant]
  5. LAMICTAL [Concomitant]
  6. ATARAX [Concomitant]

REACTIONS (1)
  - OESOPHAGEAL STENOSIS [None]
